FAERS Safety Report 5608308-9 (Version None)
Quarter: 2008Q1

REPORT INFORMATION
  Report Type: 
  Country: None (occurrence: None)
  Receive Date: 20080111
  Receipt Date: 20070817
  Transmission Date: 20080703
  Serious: Yes (Other)
  Sender: FDA-Public Use
  Company Number: HQWYE082613AUG03

PATIENT
  Age: 46 Year
  Sex: Female
  Weight: 85.35 kg

DRUGS (6)
  1. PREMPRO [Suspect]
     Indication: HORMONE REPLACEMENT THERAPY
     Dosage: 0.625MG/2.5MG/UNKNOWN FREQUENCY, ORAL
     Route: 048
     Dates: end: 19980101
  2. ESTRACE [Suspect]
     Indication: HORMONE REPLACEMENT THERAPY
     Dosage: VAGINAL
     Route: 067
     Dates: start: 19950530
  3. ESTRADIOL [Suspect]
     Indication: HORMONE REPLACEMENT THERAPY
     Dosage: 1MG/UNKNOWN FREQUENCY, ORAL
     Route: 048
     Dates: start: 19980112, end: 19980715
  4. PREMARIN [Suspect]
     Indication: OESTROGEN REPLACEMENT THERAPY
     Dosage: 0.625MG/OR 0.3MG/OR 1.25MG, ORAL
     Route: 048
     Dates: end: 19981230
  5. PREMARIN [Suspect]
     Dosage: 0.626 MG/TWICE WEEKLY, VAGINAL
     Route: 067
  6. SYNTHROID [Concomitant]

REACTIONS (1)
  - BREAST CANCER [None]
